FAERS Safety Report 26113255 (Version 1)
Quarter: 2025Q4

REPORT INFORMATION
  Report Type: Spontaneous
  Country: US (occurrence: US)
  Receive Date: 20251202
  Receipt Date: 20251202
  Transmission Date: 20260118
  Serious: No
  Sender: BIOVITRUM
  Company Number: US-BIOVITRUM-2025-US-015974

PATIENT
  Sex: Male

DRUGS (2)
  1. VONJO [Suspect]
     Active Substance: PACRITINIB
     Indication: Product used for unknown indication
     Dosage: DOSE QUANTITY: 5
     Dates: start: 20251023
  2. ITRACONAZOLE [Suspect]
     Active Substance: ITRACONAZOLE
     Indication: Product used for unknown indication
     Dosage: TAKING TWO CAPSULES
     Dates: start: 20250914

REACTIONS (3)
  - Eye swelling [Recovering/Resolving]
  - Rash pruritic [Unknown]
  - Urticaria [Unknown]
